FAERS Safety Report 5217237-4 (Version None)
Quarter: 2007Q1

REPORT INFORMATION
  Report Type: 
  Country: None (occurrence: None)
  Receive Date: 20070119
  Receipt Date: 20070115
  Transmission Date: 20070707
  Serious: Yes (Hospitalization, Other)
  Sender: FDA-Public Use
  Company Number: L07-JPN-00200-01

PATIENT
  Age: 49 Year
  Sex: Female

DRUGS (2)
  1. CARBAMAZEPINE [Suspect]
     Indication: EPILEPSY
  2. UNSPECIFIED ANTIBIOTICS [Concomitant]

REACTIONS (4)
  - CRYPTOGENIC ORGANISING PNEUMONIA [None]
  - DYSPNOEA EXERTIONAL [None]
  - HYPOGAMMAGLOBULINAEMIA [None]
  - RESPIRATORY TRACT INFECTION [None]
